FAERS Safety Report 4524808-7 (Version None)
Quarter: 2004Q4

REPORT INFORMATION
  Report Type: 
  Country: None (occurrence: None)
  Receive Date: 20041208
  Receipt Date: 20041124
  Transmission Date: 20050328
  Serious: Yes (Life-Threatening, Hospitalization, Disabling, Other)
  Sender: FDA-Public Use
  Company Number: 2004-0007123

PATIENT
  Age: 39 Year
  Sex: Male
  Weight: 85.4 kg

DRUGS (10)
  1. VIREAD [Suspect]
     Indication: ACQUIRED IMMUNODEFICIENCY SYNDROME
     Dosage: 300 MG, 1 IN 1 D, ORAL
     Route: 048
     Dates: start: 20030809, end: 20030820
  2. VIDEX [Concomitant]
  3. ZIAGEN [Concomitant]
  4. ALPRAZOLAM [Concomitant]
  5. EXCEDRIN (THOMAPYRIN N) [Concomitant]
  6. DIFLUCAN [Concomitant]
  7. IMIREX (SUMATRIPTAN SUCCINATE) [Concomitant]
  8. CLARITIN [Concomitant]
  9. FLONASE [Concomitant]
  10. PROBENECID [Concomitant]

REACTIONS (29)
  - ABDOMINAL PAIN [None]
  - ABDOMINAL PAIN UPPER [None]
  - AIDS ENCEPHALOPATHY [None]
  - ANAEMIA [None]
  - ASTHENIA [None]
  - BLOOD BICARBONATE DECREASED [None]
  - BLOOD CALCIUM DECREASED [None]
  - BLOOD PRESSURE DECREASED [None]
  - BLOOD SODIUM DECREASED [None]
  - CARDIO-RESPIRATORY ARREST [None]
  - CEREBRAL ISCHAEMIA [None]
  - CHILLS [None]
  - CONVULSION [None]
  - DYSPNOEA [None]
  - EARLY SATIETY [None]
  - ENTEROCOCCAL BACTERAEMIA [None]
  - HAEMODIALYSIS [None]
  - HEART RATE INCREASED [None]
  - MYCOBACTERIUM AVIUM COMPLEX INFECTION [None]
  - NAUSEA [None]
  - PANCREATITIS RELAPSING [None]
  - PHARYNGOLARYNGEAL PAIN [None]
  - POLYDIPSIA [None]
  - PYREXIA [None]
  - RASH MORBILLIFORM [None]
  - RENAL FAILURE CHRONIC [None]
  - RENAL TUBULAR NECROSIS [None]
  - THERAPY NON-RESPONDER [None]
  - TRANSIENT ISCHAEMIC ATTACK [None]
